FAERS Safety Report 20718300 (Version 1)
Quarter: 2022Q2

REPORT INFORMATION
  Report Type: Spontaneous
  Country: US (occurrence: US)
  Receive Date: 20220418
  Receipt Date: 20220418
  Transmission Date: 20220721
  Serious: No
  Sender: FDA-Public Use
  Company Number: US-UCBSA-2021021208

PATIENT
  Age: 61 Year
  Sex: Female

DRUGS (2)
  1. NEUPRO [Interacting]
     Active Substance: ROTIGOTINE
     Indication: Restless legs syndrome
     Dosage: 3 MILLIGRAM, ONCE DAILY (QD)
     Route: 062
     Dates: start: 2017
  2. TIZANIDINE [Interacting]
     Active Substance: TIZANIDINE
     Indication: Back pain
     Dosage: 15 MILLIGRAM, 2X/DAY (BID)

REACTIONS (3)
  - Back pain [Not Recovered/Not Resolved]
  - Drug ineffective [Unknown]
  - Drug interaction [Not Recovered/Not Resolved]

NARRATIVE: CASE EVENT DATE: 20210426
